FAERS Safety Report 6604318-3 (Version None)
Quarter: 2010Q1

REPORT INFORMATION
  Report Type: 
  Country: None (occurrence: None)
  Receive Date: 20100226
  Receipt Date: 20090819
  Transmission Date: 20100710
  Serious: No
  Sender: FDA-Public Use
  Company Number: A0803082A

PATIENT
  Age: 17 Year
  Sex: Male

DRUGS (2)
  1. LAMOTRIGINE [Suspect]
     Indication: EPILEPSY
     Dosage: 150MG TWICE PER DAY
     Route: 048
  2. UNKNOWN [Concomitant]

REACTIONS (2)
  - ABDOMINAL PAIN UPPER [None]
  - EYE ROLLING [None]
